FAERS Safety Report 7551871-1 (Version None)
Quarter: 2011Q2

REPORT INFORMATION
  Report Type: 
  Country: None (occurrence: None)
  Receive Date: 20110616
  Receipt Date: 20110613
  Transmission Date: 20111010
  Serious: Yes (Death, Other)
  Sender: FDA-Public Use
  Company Number: PHHY2011TR51514

PATIENT
  Age: 62 Year
  Sex: Female

DRUGS (4)
  1. IDARUBICIN HCL [Suspect]
  2. TRETINOIN [Suspect]
  3. LAMIVUDINE [Suspect]
     Dosage: 300 MG/DAY
  4. CYTARABINE [Suspect]

REACTIONS (10)
  - HYPOALBUMINAEMIA [None]
  - INTERNATIONAL NORMALISED RATIO INCREASED [None]
  - LIVER FUNCTION TEST ABNORMAL [None]
  - ASTHENIA [None]
  - NAUSEA [None]
  - HEPATITIS B [None]
  - ASCITES [None]
  - HEPATIC FAILURE [None]
  - ALTERED STATE OF CONSCIOUSNESS [None]
  - PANCYTOPENIA [None]
